FAERS Safety Report 15710726 (Version 2)
Quarter: 2018Q4

REPORT INFORMATION
  Report Type: Spontaneous
  Country: US (occurrence: US)
  Receive Date: 20181211
  Receipt Date: 20181214
  Transmission Date: 20190205
  Serious: Yes (Other)
  Sender: FDA-Public Use
  Company Number: US-BIOMARINAP-US-2018-121132

PATIENT
  Age: 15 Year
  Sex: Female

DRUGS (3)
  1. ALDURAZYME [Suspect]
     Active Substance: LARONIDASE
     Dosage: UNK
     Route: 058
     Dates: start: 201811, end: 201811
  2. ALDURAZYME [Suspect]
     Active Substance: LARONIDASE
     Indication: PRODUCT USED FOR UNKNOWN INDICATION
     Dosage: 31.9 MILLIGRAM, QW
     Route: 041
     Dates: start: 20151020
  3. ALDURAZYME [Suspect]
     Active Substance: LARONIDASE
     Dosage: 31.9 UNK
     Route: 041

REACTIONS (9)
  - Headache [Unknown]
  - Pneumonia [Unknown]
  - Dizziness [Unknown]
  - Pulmonary oedema [Unknown]
  - Vertigo [Unknown]
  - Incorrect route of product administration [Unknown]
  - Injection site extravasation [Unknown]
  - Peripheral swelling [Recovered/Resolved]
  - Product dose omission [Unknown]

NARRATIVE: CASE EVENT DATE: 201811
